FAERS Safety Report 14663478 (Version 2)
Quarter: 2018Q2

REPORT INFORMATION
  Report Type: Spontaneous
  Country: US (occurrence: US)
  Receive Date: 20180321
  Receipt Date: 20180621
  Transmission Date: 20180711
  Serious: No
  Sender: FDA-Public Use
  Company Number: US-PFIZER INC-2018118413

PATIENT
  Age: 69 Year
  Sex: Female
  Weight: 64.41 kg

DRUGS (1)
  1. XANAX [Suspect]
     Active Substance: ALPRAZOLAM
     Indication: ANXIETY
     Dosage: UNK
     Route: 048
     Dates: start: 201708

REACTIONS (4)
  - Panic attack [Unknown]
  - Drug ineffective [Unknown]
  - Pruritus [Recovered/Resolved]
  - Rash [Unknown]
